FAERS Safety Report 17261610 (Version 1)
Quarter: 2020Q1

REPORT INFORMATION
  Report Type: Spontaneous
  Country: US (occurrence: US)
  Receive Date: 20200113
  Receipt Date: 20200113
  Transmission Date: 20200409
  Serious: Yes (Other)
  Sender: FDA-Public Use
  Company Number: US-TEVA-2020-US-1167876

PATIENT
  Sex: Female

DRUGS (1)
  1. TEVA EPINEPHRINE [Suspect]
     Active Substance: EPINEPHRINE
     Indication: HYPERSENSITIVITY
     Dosage: FORM STRENGTH : 0.3 MG / 0.3 ML
     Route: 065
     Dates: start: 20200105

REACTIONS (3)
  - Needle issue [Unknown]
  - Near death experience [Unknown]
  - Accidental exposure to product [Unknown]

NARRATIVE: CASE EVENT DATE: 20200105
